FAERS Safety Report 6585795-3 (Version None)
Quarter: 2010Q1

REPORT INFORMATION
  Report Type: 
  Country: None (occurrence: None)
  Receive Date: 20100217
  Receipt Date: 20100205
  Transmission Date: 20100710
  Serious: Yes (Death, Other)
  Sender: FDA-Public Use
  Company Number: GB-PFIZER INC-2010015301

PATIENT
  Age: 31 Year
  Sex: Male
  Weight: 100 kg

DRUGS (9)
  1. GABAPENTIN [Suspect]
     Indication: PAIN
     Dosage: 300 MG, 1X/DAY
     Route: 048
     Dates: start: 20020107
  2. METHADONE [Suspect]
     Indication: PAIN
     Dosage: UNK
     Route: 048
     Dates: start: 20020115
  3. DEBRISOQUINE [Suspect]
     Indication: PAIN
     Dosage: 10 MG, 1X/DAY
     Dates: start: 20020107
  4. ACETAMINOPHEN WITH PROPOXYPHENE HCL TAB [Concomitant]
  5. DICLOFENAC [Concomitant]
  6. DIHYDROCODEINE [Concomitant]
  7. MORPHINE [Concomitant]
  8. PETHIDINE [Concomitant]
  9. TRAMADOL [Concomitant]

REACTIONS (4)
  - CYANOSIS [None]
  - DEATH [None]
  - DRUG INTERACTION [None]
  - PULMONARY OEDEMA [None]
